FAERS Safety Report 10741310 (Version 2)
Quarter: 2015Q1

REPORT INFORMATION
  Report Type: Spontaneous
  Country: JP (occurrence: JP)
  Receive Date: 20150127
  Receipt Date: 20150306
  Transmission Date: 20150721
  Serious: Yes (Hospitalization)
  Sender: FDA-Public Use
  Company Number: JP-ELI_LILLY_AND_COMPANY-JP201501007766

PATIENT
  Age: 89 Year
  Sex: Female

DRUGS (10)
  1. LYRICA [Concomitant]
     Active Substance: PREGABALIN
  2. METHYCOBAL [Concomitant]
     Active Substance: METHYLCOBALAMIN
  3. CELECOX [Concomitant]
     Active Substance: CELECOXIB
  4. PARIET [Concomitant]
     Active Substance: RABEPRAZOLE SODIUM
  5. MERISLON [Concomitant]
     Active Substance: BETAHISTINE MESILATE
  6. FORTEO [Suspect]
     Active Substance: TERIPARATIDE
     Indication: PRODUCT USED FOR UNKNOWN INDICATION
     Route: 058
  7. PURSENNID                          /00571902/ [Concomitant]
     Active Substance: SENNOSIDES A AND B
  8. REBAMIPIDE [Concomitant]
     Active Substance: REBAMIPIDE
  9. GASMOTIN [Concomitant]
     Active Substance: MOSAPRIDE CITRATE
  10. AMOBAN [Concomitant]
     Active Substance: ZOPICLONE

REACTIONS (2)
  - Gout [Unknown]
  - Toxic shock syndrome staphylococcal [Unknown]
